FAERS Safety Report 24389444 (Version 1)
Quarter: 2024Q4

REPORT INFORMATION
  Report Type: Spontaneous
  Country: CN (occurrence: CN)
  Receive Date: 20241003
  Receipt Date: 20241003
  Transmission Date: 20250115
  Serious: Yes (Other)
  Sender: STRIDES
  Company Number: CN-STRIDES ARCOLAB LIMITED-2024SP012592

PATIENT
  Age: 10 Year
  Sex: Female

DRUGS (2)
  1. METHOTREXATE [Suspect]
     Active Substance: METHOTREXATE
     Indication: T-cell type acute leukaemia
     Dosage: 2 GRAM PER SQUARE METRE (RECEIVED 2G/M2 ON DAY DAY-1, 15, 28 AND 42)
     Route: 065
  2. MERCAPTOPURINE [Suspect]
     Active Substance: MERCAPTOPURINE
     Indication: T-cell type acute leukaemia
     Dosage: 25 MILLIGRAM/SQ. METER (RECEIVED ON DAY 1-56)
     Route: 065

REACTIONS (2)
  - Acute kidney injury [Unknown]
  - Drug intolerance [Unknown]
